FAERS Safety Report 5837547-7 (Version None)
Quarter: 2008Q3

REPORT INFORMATION
  Report Type: 
  Country: None (occurrence: None)
  Receive Date: 20080807
  Receipt Date: 20080728
  Transmission Date: 20090109
  Serious: Yes (Other)
  Sender: FDA-Public Use
  Company Number: GB-PFIZER INC-2008063498

PATIENT
  Sex: Male

DRUGS (2)
  1. AZITHROMYCIN [Suspect]
     Dosage: TEXT:250 MG
  2. RIFAMPICIN [Concomitant]

REACTIONS (3)
  - CHRONIC FATIGUE SYNDROME [None]
  - FATIGUE [None]
  - PNEUMONIA [None]
